FAERS Safety Report 13305761 (Version 1)
Quarter: 2017Q1

REPORT INFORMATION
  Report Type: Spontaneous
  Country: JP (occurrence: JP)
  Receive Date: 20170308
  Receipt Date: 20170308
  Transmission Date: 20170428
  Serious: Yes (Death, Life-Threatening, Hospitalization, Other)
  Sender: FDA-Public Use
  Company Number: JP-ELI_LILLY_AND_COMPANY-JP201612005000

PATIENT
  Age: 60 Year
  Sex: Male
  Weight: 49 kg

DRUGS (11)
  1. LASIX [Concomitant]
     Active Substance: FUROSEMIDE
     Indication: ASCITES
     Dosage: 20 MG, QD
     Route: 048
     Dates: start: 20161013, end: 20161201
  2. ALDACTONE A [Concomitant]
     Active Substance: SPIRONOLACTONE
     Indication: ASCITES
     Dosage: 50 MG, QD
     Route: 048
     Dates: start: 20161013, end: 20161201
  3. PACLITAXEL. [Concomitant]
     Active Substance: PACLITAXEL
     Indication: GASTRIC CANCER RECURRENT
     Dosage: 130 MG, OTHER
     Route: 042
     Dates: start: 20161020, end: 20161130
  4. REBAMIPIDE [Concomitant]
     Active Substance: REBAMIPIDE
     Indication: PROPHYLAXIS
     Dosage: UNK
     Route: 048
     Dates: start: 20160525, end: 20161201
  5. LOXONIN [Concomitant]
     Active Substance: LOXOPROFEN SODIUM
     Indication: ABDOMINAL PAIN
     Dosage: UNK
     Route: 048
     Dates: start: 20160525, end: 20161201
  6. NEXIUM [Concomitant]
     Active Substance: ESOMEPRAZOLE MAGNESIUM
     Indication: PROPHYLAXIS
     Dosage: 10 MG, QD
     Route: 048
     Dates: start: 20161031, end: 20161201
  7. DECADRON [Concomitant]
     Active Substance: DEXAMETHASONE
     Indication: MALAISE
     Dosage: UNK
     Route: 048
     Dates: start: 20161028, end: 20161201
  8. AMLODIPINE [Concomitant]
     Active Substance: AMLODIPINE BESYLATE
     Indication: HYPERTENSION
     Dosage: 5 MG, QD
     Route: 048
     Dates: end: 20161201
  9. MAGMITT [Concomitant]
     Active Substance: MAGNESIUM OXIDE
     Indication: DYSCHEZIA
     Dosage: UNK
     Route: 048
     Dates: start: 20160908, end: 20161201
  10. CYRAMZA [Suspect]
     Active Substance: RAMUCIRUMAB
     Indication: GASTRIC CANCER RECURRENT
     Dosage: 500 MG, OTHER
     Route: 042
     Dates: start: 20161020, end: 20161130
  11. LOXONIN [Concomitant]
     Active Substance: LOXOPROFEN SODIUM
     Indication: BACK PAIN

REACTIONS (9)
  - Gastrointestinal haemorrhage [Unknown]
  - Peritonitis [Fatal]
  - Septic shock [Unknown]
  - Decreased appetite [Unknown]
  - Malignant neoplasm progression [Fatal]
  - Neutropenia [Recovered/Resolved]
  - Gastrointestinal perforation [Not Recovered/Not Resolved]
  - Pneumonia aspiration [Unknown]
  - Pyrexia [Unknown]

NARRATIVE: CASE EVENT DATE: 20161027
